FAERS Safety Report 7120525-8 (Version None)
Quarter: 2010Q4

REPORT INFORMATION
  Report Type: 
  Country: None (occurrence: None)
  Receive Date: 20101124
  Receipt Date: 20101118
  Transmission Date: 20110411
  Serious: Yes (Other)
  Sender: FDA-Public Use
  Company Number: US-PFIZER INC-2010153427

PATIENT
  Sex: Male

DRUGS (1)
  1. CHANTIX [Suspect]
     Dosage: UNK
     Dates: start: 20071201

REACTIONS (4)
  - ANXIETY [None]
  - DEPRESSION [None]
  - JOINT INJURY [None]
  - LOSS OF CONSCIOUSNESS [None]
